FAERS Safety Report 13140217 (Version 2)
Quarter: 2017Q2

REPORT INFORMATION
  Report Type: Spontaneous
  Country: US (occurrence: US)
  Receive Date: 20170123
  Receipt Date: 20170420
  Transmission Date: 20170830
  Serious: Yes (Other)
  Sender: FDA-Public Use
  Company Number: US-ELI_LILLY_AND_COMPANY-US201607009142

PATIENT
  Age: 18 Year
  Sex: Male
  Weight: 63.8 kg

DRUGS (8)
  1. CYMBALTA [Suspect]
     Active Substance: DULOXETINE HYDROCHLORIDE
     Dosage: 60 MG, QD
     Route: 065
     Dates: start: 201410
  2. CYMBALTA [Suspect]
     Active Substance: DULOXETINE HYDROCHLORIDE
     Indication: DEPRESSION
     Dosage: 30 MG, QD
     Route: 065
     Dates: start: 20111117
  3. CYMBALTA [Suspect]
     Active Substance: DULOXETINE HYDROCHLORIDE
     Indication: PAIN
     Dosage: 60 MG, QD
     Route: 065
     Dates: start: 201111
  4. CYMBALTA [Suspect]
     Active Substance: DULOXETINE HYDROCHLORIDE
     Dosage: 40 MG, QD
     Route: 065
     Dates: start: 20150106
  5. CYMBALTA [Suspect]
     Active Substance: DULOXETINE HYDROCHLORIDE
     Dosage: 20 MG, BID
     Route: 065
     Dates: start: 20141115
  6. CYMBALTA [Suspect]
     Active Substance: DULOXETINE HYDROCHLORIDE
     Dosage: 50 MG, QD
     Route: 065
     Dates: start: 20141201
  7. CYMBALTA [Suspect]
     Active Substance: DULOXETINE HYDROCHLORIDE
     Dosage: 30 MG, QD
     Route: 065
     Dates: start: 201410
  8. CYMBALTA [Suspect]
     Active Substance: DULOXETINE HYDROCHLORIDE
     Dosage: 20 MG, QD
     Route: 065
     Dates: start: 201411

REACTIONS (24)
  - Suicide attempt [Unknown]
  - Tremor [Unknown]
  - Depression [Unknown]
  - Anxiety [Unknown]
  - Drug ineffective [Unknown]
  - Paraesthesia [Unknown]
  - Hyperhidrosis [Unknown]
  - Irritability [Unknown]
  - Hypomania [Unknown]
  - Affect lability [Unknown]
  - Tachyphrenia [Unknown]
  - Drug withdrawal syndrome [Unknown]
  - Suicidal ideation [Unknown]
  - Dizziness [Unknown]
  - Headache [Unknown]
  - Lethargy [Unknown]
  - Dysphoria [Unknown]
  - Nausea [Unknown]
  - Insomnia [Unknown]
  - Depressed mood [Unknown]
  - Fatigue [Unknown]
  - Confusional state [Unknown]
  - Sensory disturbance [Unknown]
  - Agitation [Unknown]

NARRATIVE: CASE EVENT DATE: 201411
